FAERS Safety Report 15932883 (Version 4)
Quarter: 2020Q2

REPORT INFORMATION
  Report Type: Spontaneous
  Country: US (occurrence: US)
  Receive Date: 20190207
  Receipt Date: 20200608
  Transmission Date: 20200713
  Serious: Yes (Hospitalization, Other)
  Sender: FDA-Public Use
  Company Number: US-SA-2019SA035638

PATIENT

DRUGS (1)
  1. DUPIXENT [Suspect]
     Active Substance: DUPILUMAB
     Indication: DERMATITIS ATOPIC
     Dosage: 300 MG, QOW
     Route: 058
     Dates: start: 20180410

REACTIONS (4)
  - Post procedural discharge [Recovering/Resolving]
  - Cerebrovascular accident [Unknown]
  - Back pain [Unknown]
  - Spinal operation [Recovering/Resolving]

NARRATIVE: CASE EVENT DATE: 201812
